FAERS Safety Report 9306196 (Version 1)
Quarter: 2013Q2

REPORT INFORMATION
  Report Type: Spontaneous
  Country: US (occurrence: None)
  Receive Date: 20130516
  Receipt Date: 20130516
  Transmission Date: 20140414
  Serious: Yes (Hospitalization)
  Sender: FDA-Public Use
  Company Number: 003-106

PATIENT
  Age: 16 Year
  Sex: Male

DRUGS (1)
  1. CROFAB [Suspect]
     Dosage: 38 VIALS TOTAL

REACTIONS (4)
  - Platelet count decreased [None]
  - Haematemesis [None]
  - Diarrhoea haemorrhagic [None]
  - Contusion [None]
